FAERS Safety Report 20009765 (Version 1)
Quarter: 2021Q4

REPORT INFORMATION
  Report Type: Spontaneous
  Country: PL (occurrence: PL)
  Receive Date: 20211028
  Receipt Date: 20211028
  Transmission Date: 20220303
  Serious: Yes (Other)
  Sender: FDA-Public Use
  Company Number: 2021A780906

PATIENT
  Age: 31 Year
  Sex: Male

DRUGS (4)
  1. OMEPRAZOLE [Interacting]
     Active Substance: OMEPRAZOLE
     Indication: Product used for unknown indication
     Dosage: 2 X 20 MG
     Route: 048
  2. ESCITALOPRAM [Interacting]
     Active Substance: ESCITALOPRAM OXALATE
     Indication: Depression
     Route: 065
  3. DEXTROMETHORPHAN [Interacting]
     Active Substance: DEXTROMETHORPHAN
     Indication: Antitussive therapy
     Dosage: 3 X 30 MG
     Route: 065
  4. AMLODIPINE\PERINDOPRIL [Concomitant]
     Active Substance: AMLODIPINE\PERINDOPRIL
     Indication: Hypertension
     Dosage: 10MG +10 MG
     Route: 065

REACTIONS (6)
  - Serotonin syndrome [Unknown]
  - Cough [Recovered/Resolved]
  - Hyperhidrosis [Unknown]
  - Drug interaction [Recovered/Resolved]
  - Labelled drug-drug interaction issue [Recovered/Resolved]
  - Drug interaction [Recovered/Resolved]
